FAERS Safety Report 25890424 (Version 1)
Quarter: 2025Q4

REPORT INFORMATION
  Report Type: Spontaneous
  Country: JP (occurrence: JP)
  Receive Date: 20251007
  Receipt Date: 20251007
  Transmission Date: 20260118
  Serious: Yes (Hospitalization, Other)
  Sender: AMGEN
  Company Number: JP-AMGEN-JPNSP2025194981

PATIENT

DRUGS (2)
  1. BEVACIZUMAB [Suspect]
     Active Substance: BEVACIZUMAB
     Indication: Colorectal cancer stage IV
     Dosage: UNK
     Route: 065
  2. PANITUMUMAB [Suspect]
     Active Substance: PANITUMUMAB
     Indication: Colorectal cancer stage IV
     Dosage: UNK
     Route: 065

REACTIONS (6)
  - Colorectal cancer metastatic [Unknown]
  - Metastases to liver [Unknown]
  - Postoperative abscess [Unknown]
  - Procedural haemorrhage [Unknown]
  - Urinary tract infection [Unknown]
  - Postoperative ileus [Unknown]
